FAERS Safety Report 23861481 (Version 1)
Quarter: 2024Q2

REPORT INFORMATION
  Report Type: Report from Study
  Country: CN (occurrence: CN)
  Receive Date: 20240516
  Receipt Date: 20240516
  Transmission Date: 20240716
  Serious: Yes (Other)
  Sender: FDA-Public Use
  Company Number: CN-TAKEDA-2024TUS047497

PATIENT
  Age: 29 Year
  Sex: Female
  Weight: 47.5 kg

DRUGS (5)
  1. VEDOLIZUMAB [Suspect]
     Active Substance: VEDOLIZUMAB
     Indication: Colitis ulcerative
     Dosage: 300 MILLIGRAM
     Route: 042
     Dates: start: 20221013
  2. INFLIXIMAB [Concomitant]
     Active Substance: INFLIXIMAB
     Indication: Inflammatory bowel disease
     Dosage: 300 MILLIGRAM, QD
     Route: 042
     Dates: start: 20231204, end: 20231204
  3. INFLIXIMAB [Concomitant]
     Active Substance: INFLIXIMAB
     Dosage: 300 MILLIGRAM, QD
     Route: 042
     Dates: start: 20231225, end: 20231225
  4. INFLIXIMAB [Concomitant]
     Active Substance: INFLIXIMAB
     Dosage: 300 MILLIGRAM, QD
     Route: 042
     Dates: start: 20240218, end: 20240218
  5. DEXAMETHASONE SODIUM PHOSPHATE [Concomitant]
     Active Substance: DEXAMETHASONE PHOSPHATE\DEXAMETHASONE SODIUM PHOSPHATE
     Indication: Inflammatory bowel disease
     Dosage: 5 MILLIGRAM, QD
     Route: 042
     Dates: start: 20231204, end: 20231204

REACTIONS (1)
  - Ankylosing spondylitis [Recovering/Resolving]

NARRATIVE: CASE EVENT DATE: 20230404
